FAERS Safety Report 6018228-6 (Version None)
Quarter: 2008Q4

REPORT INFORMATION
  Report Type: 
  Country: None (occurrence: None)
  Receive Date: 20081223
  Receipt Date: 20081218
  Transmission Date: 20090506
  Serious: Yes (Hospitalization, Disabling, Other)
  Sender: FDA-Public Use
  Company Number: US-ELI_LILLY_AND_COMPANY-US200812005089

PATIENT
  Sex: Female

DRUGS (7)
  1. HUMALOG [Suspect]
     Indication: DIABETES MELLITUS
     Dosage: 12 U, UNK
  2. HUMALOG [Suspect]
  3. HUMULIN N [Suspect]
     Indication: DIABETES MELLITUS
  4. HUMULIN R [Suspect]
     Indication: DIABETES MELLITUS
  5. LANTUS [Concomitant]
  6. LEVEMIR [Concomitant]
  7. NEURONTIN [Concomitant]

REACTIONS (12)
  - ABDOMINAL INFECTION [None]
  - BLOOD GLUCOSE FLUCTUATION [None]
  - BLOOD GLUCOSE INCREASED [None]
  - IMMUNE SYSTEM DISORDER [None]
  - INFECTION [None]
  - LUNG INFECTION [None]
  - MALAISE [None]
  - MULTIPLE SCLEROSIS [None]
  - ORGAN FAILURE [None]
  - PARALYSIS [None]
  - SPINAL CORD INFECTION [None]
  - UPPER RESPIRATORY TRACT INFECTION [None]
